FAERS Safety Report 12690874 (Version 2)
Quarter: 2016Q4

REPORT INFORMATION
  Report Type: Spontaneous
  Country: FR (occurrence: FR)
  Receive Date: 20160826
  Receipt Date: 20161007
  Transmission Date: 20170207
  Serious: Yes (Death, Other)
  Sender: FDA-Public Use
  Company Number: FR-BRISTOL-MYERS SQUIBB COMPANY-BMS-2016-069125

PATIENT
  Age: 71 Year
  Sex: Female

DRUGS (1)
  1. OPDIVO [Suspect]
     Active Substance: NIVOLUMAB
     Indication: NON-SMALL CELL LUNG CANCER METASTATIC
     Dosage: 140 MG, UNK
     Route: 042
     Dates: start: 20160524, end: 20160607

REACTIONS (3)
  - Haemoptysis [Fatal]
  - Bronchial fistula [Unknown]
  - Pharyngeal operation [Unknown]

NARRATIVE: CASE EVENT DATE: 20160611
